FAERS Safety Report 13772408 (Version 1)
Quarter: 2017Q3

REPORT INFORMATION
  Report Type: Spontaneous
  Country: JP (occurrence: JP)
  Receive Date: 20170720
  Receipt Date: 20170720
  Transmission Date: 20171127
  Serious: Yes (Hospitalization)
  Sender: FDA-Public Use
  Company Number: JP-ELI_LILLY_AND_COMPANY-JP201707004762

PATIENT
  Age: 48 Year
  Sex: Female

DRUGS (4)
  1. LEVOFOLINATE                       /06682103/ [Concomitant]
     Active Substance: LEVOLEUCOVORIN CALCIUM
     Indication: COLON CANCER
     Dosage: UNK
     Route: 041
     Dates: start: 20161124, end: 20161207
  2. CYRAMZA [Suspect]
     Active Substance: RAMUCIRUMAB
     Indication: COLON CANCER
     Dosage: UNK
     Route: 041
     Dates: start: 20161124, end: 20161207
  3. FLUOROURACIL. [Concomitant]
     Active Substance: FLUOROURACIL
     Indication: COLON CANCER
     Dosage: UNK
     Route: 041
     Dates: start: 20161124, end: 20161207
  4. IRINOTECAN [Concomitant]
     Active Substance: IRINOTECAN
     Indication: COLON CANCER
     Dosage: UNK
     Route: 041
     Dates: start: 20161124, end: 20161207

REACTIONS (3)
  - Proteinuria [Recovered/Resolved]
  - Blood pressure increased [Unknown]
  - Oedema [Recovering/Resolving]

NARRATIVE: CASE EVENT DATE: 201612
